FAERS Safety Report 7611963-5 (Version None)
Quarter: 2011Q3

REPORT INFORMATION
  Report Type: 
  Country: None (occurrence: None)
  Receive Date: 20110715
  Receipt Date: 20110711
  Transmission Date: 20111222
  Serious: Yes (Hospitalization, Other)
  Sender: FDA-Public Use
  Company Number: JP-PFIZER INC-2011122772

PATIENT
  Age: 79 Year
  Sex: Female

DRUGS (8)
  1. LIPITOR [Concomitant]
     Dosage: 5 MG, 1X/DAY
     Route: 048
  2. LASIX [Concomitant]
     Dosage: 20 MG DAILY
     Route: 048
  3. LYRICA [Suspect]
     Indication: PROCEDURAL PAIN
  4. LYRICA [Suspect]
     Indication: SCIATICA
     Dosage: 75 MG, 2X/DAY
     Route: 048
     Dates: start: 20110602, end: 20110604
  5. LOSARTAN POTASSIUM AND HYDROCHLOROTHIAZIDE [Concomitant]
     Dosage: UNK
     Route: 048
  6. LYRICA [Suspect]
     Indication: PAIN IN EXTREMITY
  7. ETODOLAC [Concomitant]
     Dosage: UNK
     Route: 048
  8. GRANDAXIN [Concomitant]
     Dosage: UNK
     Route: 048

REACTIONS (2)
  - MYOCLONUS [None]
  - LIVER DISORDER [None]
